FAERS Safety Report 17878037 (Version 1)
Quarter: 2020Q2

REPORT INFORMATION
  Report Type: Spontaneous
  Country: CA (occurrence: CA)
  Receive Date: 20200609
  Receipt Date: 20200609
  Transmission Date: 20200714
  Serious: Yes (Other)
  Sender: FDA-Public Use
  Company Number: CA-AUROBINDO-AUR-APL-2020-027348

PATIENT
  Age: 18 Year
  Sex: Female
  Weight: 46 kg

DRUGS (3)
  1. REMICADE [Suspect]
     Active Substance: INFLIXIMAB
     Indication: COLITIS ULCERATIVE
     Dosage: 300 MILLIGRAM, 1 EVERY 6 WEEKS
     Route: 042
  2. CEFIXIME. [Suspect]
     Active Substance: CEFIXIME
     Indication: PERIORBITAL CELLULITIS
     Dosage: UNK, TWO TIMES A DAY
     Route: 065
  3. SULFAMETHOXAZOLE [Suspect]
     Active Substance: SULFAMETHOXAZOLE
     Indication: PERIORBITAL CELLULITIS
     Dosage: UNK, TWO TIMES A DAY
     Route: 065

REACTIONS (4)
  - Anxiety [Recovered/Resolved]
  - Panic attack [Recovered/Resolved]
  - Asthenia [Recovered/Resolved]
  - Periorbital cellulitis [Recovered/Resolved]
